FAERS Safety Report 10273315 (Version 2)
Quarter: 2014Q3

REPORT INFORMATION
  Report Type: Report from Study
  Country: JP (occurrence: JP)
  Receive Date: 20140702
  Receipt Date: 20140918
  Transmission Date: 20150326
  Serious: Yes (Other)
  Sender: FDA-Public Use
  Company Number: JP-PFIZER INC-2014177821

PATIENT
  Age: 63 Year
  Sex: Female
  Weight: 46.6 kg

DRUGS (8)
  1. FOSPHENYTOIN SODIUM. [Suspect]
     Active Substance: FOSPHENYTOIN SODIUM
     Indication: EPILEPSY
     Dosage: 18 MG/KG (28 MG/MIN IN 0.9% PHYSIOLOGICAL SALINE IN 1:8.9)
     Dates: start: 20140227, end: 20140227
  2. FOSPHENYTOIN SODIUM. [Suspect]
     Active Substance: FOSPHENYTOIN SODIUM
     Dosage: 7.5 MG/KG (11.8 MG/MIN IN 0.9% PHYSIOLOGICAL SALINE IN 1:21.3)
     Dates: start: 20140301, end: 20140301
  3. KEPPRA [Concomitant]
     Active Substance: LEVETIRACETAM
     Dosage: 1000 MG
     Route: 048
     Dates: start: 20140305
  4. NORVASC [Concomitant]
     Active Substance: AMLODIPINE BESYLATE
     Dosage: 5 MG
     Route: 048
  5. TEGRETOL [Concomitant]
     Active Substance: CARBAMAZEPINE
     Dosage: 200 MG
     Route: 048
  6. FOSPHENYTOIN SODIUM. [Suspect]
     Active Substance: FOSPHENYTOIN SODIUM
     Dosage: 7.5 MG/KG (11.8 MG/MIN IN 0.9% PHYSIOLOGICAL SALINE IN 1:21.3)
     Dates: start: 20140228, end: 20140228
  7. MAINTATE [Concomitant]
     Active Substance: BISOPROLOL FUMARATE
     Dosage: 2.5 MG
     Route: 048
  8. ALDACTONE [Concomitant]
     Active Substance: SPIRONOLACTONE
     Dosage: 25 MG
     Route: 048

REACTIONS (2)
  - Epilepsy [Recovering/Resolving]
  - Pulmonary embolism [Recovered/Resolved]

NARRATIVE: CASE EVENT DATE: 20140305
